FAERS Safety Report 9163581 (Version 1)
Quarter: 2013Q1

REPORT INFORMATION
  Report Type: Spontaneous
  Country: US (occurrence: US)
  Receive Date: 20130314
  Receipt Date: 20130314
  Transmission Date: 20140127
  Serious: No
  Sender: FDA-Public Use
  Company Number: US-PFIZER INC-2013020539

PATIENT
  Age: 79 Year
  Sex: Female
  Weight: 64 kg

DRUGS (8)
  1. CHANTIX [Suspect]
     Indication: SMOKING CESSATION THERAPY
     Dosage: 1 MG, 1X/DAY
     Route: 048
     Dates: start: 201111, end: 201211
  2. METOPROLOL [Concomitant]
     Indication: CARDIAC DISORDER
     Dosage: 75 MG, 1X/DAY
  3. HYDRALAZINE [Concomitant]
     Indication: HYPERTENSION
     Dosage: 25 MG, 1X/DAY
  4. ZOCOR [Concomitant]
     Indication: BLOOD CHOLESTEROL INCREASED
     Dosage: 40 MG, 1X/DAY
  5. DIOVANE [Concomitant]
     Indication: HYPERTENSION
     Dosage: 320 MG, 1X/DAY
  6. ASA [Concomitant]
     Dosage: 81 MG, 1X/DAY
  7. AMLODIPINE [Concomitant]
     Dosage: 10 MG, 1X/DAY
  8. FUROSEMIDE [Concomitant]
     Dosage: 20 MG, 1X/DAY

REACTIONS (3)
  - Paraesthesia [Unknown]
  - Abnormal dreams [Unknown]
  - Insomnia [Unknown]
